FAERS Safety Report 16639838 (Version 1)
Quarter: 2019Q3

REPORT INFORMATION
  Report Type: Spontaneous
  Country: GB (occurrence: GB)
  Receive Date: 20190727
  Receipt Date: 20190727
  Transmission Date: 20191004
  Serious: Yes (Hospitalization)
  Sender: FDA-Public Use
  Company Number: GB-TEVA-2019-GB-1083680

PATIENT
  Age: 65 Year
  Sex: Male

DRUGS (32)
  1. FLETCHER^S PHOSPHATE ENEMA [Concomitant]
     Dosage: 128ML PER DAY
     Route: 054
  2. SIMVASTATIN. [Concomitant]
     Active Substance: SIMVASTATIN
     Dosage: AT NIGHT.40MG PER DAY
     Route: 048
  3. PROCYCLIDINE [Concomitant]
     Active Substance: PROCYCLIDINE
     Dosage: 15MG PER DAY
     Route: 048
  4. DIHYDROCODEINE [Concomitant]
     Active Substance: DIHYDROCODEINE
     Dosage: 240MG PER DAY
     Route: 048
  5. TAMSULOSIN [Concomitant]
     Active Substance: TAMSULOSIN
     Dosage: IN THE MORNING.400MG PER DAY
     Route: 048
  6. ESOMEPRAZOLE. [Concomitant]
     Active Substance: ESOMEPRAZOLE MAGNESIUM
     Dosage: IN THE MORNING.40MG PER DAY
     Route: 048
  7. DOMPERIDONE [Concomitant]
     Active Substance: DOMPERIDONE
     Dosage: 20MG PER DAY
     Route: 048
  8. DOCUSATE [Concomitant]
     Active Substance: DOCUSATE
     Dosage: 400MG PER DAY
     Route: 048
  9. MULTIVITAMIN [Concomitant]
     Active Substance: VITAMINS
     Dosage: 1DOSAGE FORMS PER DAY
     Route: 048
  10. ZUCLOPENTHIXOL DECANOATE [Concomitant]
     Active Substance: ZUCLOPENTHIXOL DECANOATE
     Dosage: 500MG/1ML.
     Route: 030
  11. SODIUM VALPROATE [Concomitant]
     Active Substance: VALPROATE SODIUM
     Route: 048
  12. POTASSIUM HYDROGEN CARBONATE [Concomitant]
     Dosage: 10-20ML FOUR TIMES PER DAY AS NEEDED. 100MG/5ML.
     Route: 048
  13. TRAZODONE [Concomitant]
     Active Substance: TRAZODONE HYDROCHLORIDE
     Dosage: IN THE MORNING.200MG PER DAY
     Route: 048
  14. COLECALCIFEROL [Concomitant]
     Active Substance: CHOLECALCIFEROL
     Dosage: IN THE MORNING.400 IU
  15. WARFARIN [Concomitant]
     Active Substance: WARFARIN
     Route: 048
  16. SODIUM ALGINATE [Concomitant]
     Active Substance: SODIUM ALGINATE
     Dosage: 10-20ML FOUR TIMES DAILY AS REQUIRED. 500MG/5ML.
     Route: 048
  17. LACTULOSE. [Concomitant]
     Active Substance: LACTULOSE
     Dosage: UP TO FIVE TIMES A DAY WHEN REQUIRED. 3.1-3.7G/5ML.
     Route: 048
  18. PARACETAMOL [Concomitant]
     Active Substance: ACETAMINOPHEN
     Dosage: 500MG- 1G FOUR TIMES DAILY AS NEEDED.
     Route: 048
  19. CHLORHEXIDINE GLUCONATE. [Concomitant]
     Active Substance: CHLORHEXIDINE GLUCONATE
     Dosage: TWICE DAILY AS NEEDED.
     Route: 004
  20. LEVOTHYROXINE SODIUM. [Concomitant]
     Active Substance: LEVOTHYROXINE SODIUM
     Dosage: IN THE MORNING.50MG PER DAY
     Route: 048
  21. CIPROFLOXACIN. [Suspect]
     Active Substance: CIPROFLOXACIN
     Indication: CELLULITIS
     Dosage: 1000MG PER DAY
     Route: 048
     Dates: start: 20190307
  22. CLINDAMYCIN. [Suspect]
     Active Substance: CLINDAMYCIN
     Indication: CELLULITIS
     Dosage: 1800MG PER DAY
     Route: 048
     Dates: start: 20190306, end: 20190312
  23. METFORMIN [Concomitant]
     Active Substance: METFORMIN HYDROCHLORIDE
     Dosage: 2GM PER DAY
     Route: 048
  24. AMITRIPTYLINE [Concomitant]
     Active Substance: AMITRIPTYLINE
     Dosage: ^LT^
     Route: 048
  25. CASSIA [Concomitant]
     Dosage: 30MG PER DAY
     Route: 048
  26. LIQUID PARAFFIN [Concomitant]
     Route: 061
  27. SERTRALINE [Concomitant]
     Active Substance: SERTRALINE HYDROCHLORIDE
     Dosage: IN THE MORNING.200MG PER DAY
     Route: 048
  28. CLOTRIMAZOLE. [Concomitant]
     Active Substance: CLOTRIMAZOLE
     Dosage: TWICE DAILY AS NEEDED.
     Route: 061
  29. LIQUID PARAFFIN [Concomitant]
     Dosage: FOR WASHING LEGS.
     Route: 061
  30. FERROUS SULFATE. [Concomitant]
     Active Substance: FERROUS SULFATE
     Dosage: 600MG PER DAY
     Route: 048
  31. AMITRIPTYLINE [Concomitant]
     Active Substance: AMITRIPTYLINE
     Dosage: IN THE MORNING AND IN THE EVENING.100MG PER DAY
     Route: 048
  32. ISOPROPYL MYRISTATE [Concomitant]
     Active Substance: ISOPROPYL MYRISTATE
     Route: 061

REACTIONS (4)
  - Abdominal pain [Unknown]
  - Diarrhoea [Unknown]
  - Colitis [Recovering/Resolving]
  - Clostridium difficile infection [Recovering/Resolving]

NARRATIVE: CASE EVENT DATE: 20190404
